FAERS Safety Report 6541175-8 (Version None)
Quarter: 2010Q1

REPORT INFORMATION
  Report Type: 
  Country: None (occurrence: None)
  Receive Date: 20100118
  Receipt Date: 20100113
  Transmission Date: 20100710
  Serious: Yes (Death)
  Sender: FDA-Public Use
  Company Number: A0839794A

PATIENT
  Age: 46 Year
  Sex: Female

DRUGS (3)
  1. NARAMIG [Suspect]
     Indication: HEADACHE
     Dosage: 2.5MG UNKNOWN
     Route: 048
     Dates: start: 20090101
  2. TYLENOL (CAPLET) [Concomitant]
     Dates: start: 20090101, end: 20100104
  3. DORFLEX [Concomitant]
     Dates: start: 20090101, end: 20100104

REACTIONS (2)
  - HEADACHE [None]
  - INFARCTION [None]
